FAERS Safety Report 4403610-0 (Version None)
Quarter: 2004Q3

REPORT INFORMATION
  Report Type: 
  Country: None (occurrence: None)
  Receive Date: 20040715
  Receipt Date: 20040629
  Transmission Date: 20050211
  Serious: Yes (Death)
  Sender: FDA-Public Use
  Company Number: US-JNJFOC-20040702556

PATIENT
  Age: 40 Year
  Sex: Female
  Weight: 152.6808 kg

DRUGS (1)
  1. LEVOFLOXACIN [Suspect]
     Indication: CALCULUS URINARY
     Dosage: 500 MG, INTRAVENOUS
     Route: 042
     Dates: start: 20020429, end: 20020430

REACTIONS (6)
  - ARRHYTHMIA [None]
  - CYANOSIS [None]
  - PULSE ABSENT [None]
  - RESPIRATORY DISORDER [None]
  - SYNCOPE [None]
  - TORSADE DE POINTES [None]
